FAERS Safety Report 10185610 (Version 1)
Quarter: 2014Q2

REPORT INFORMATION
  Report Type: Spontaneous
  Country: US (occurrence: None)
  Receive Date: 20140520
  Receipt Date: 20140520
  Transmission Date: 20141212
  Serious: Yes (Other)
  Sender: FDA-Public Use
  Company Number: None

PATIENT
  Age: 66 Year
  Sex: Female
  Weight: 74.84 kg

DRUGS (2)
  1. QSYMIA [Suspect]
     Indication: OBESITY
     Dates: start: 20140121, end: 20140408
  2. ACETAMINOPHEN (TYLENOL) [Concomitant]

REACTIONS (3)
  - Suicidal ideation [None]
  - Depressive symptom [None]
  - Therapy change [None]
